FAERS Safety Report 4965778-7 (Version None)
Quarter: 2006Q2

REPORT INFORMATION
  Report Type: 
  Country: None (occurrence: None)
  Receive Date: 20060405
  Receipt Date: 20060405
  Transmission Date: 20061013
  Serious: Yes (Other)
  Sender: FDA-Public Use
  Company Number: None

PATIENT
  Sex: Female
  Weight: 60.3284 kg

DRUGS (2)
  1. ALLEGRA [Suspect]
     Indication: CHRONIC OBSTRUCTIVE PULMONARY DISEASE
     Dosage: 180MG   ONCE DAILY  PO
     Route: 048
     Dates: start: 20060324, end: 20060325
  2. ALLEGRA [Suspect]
     Indication: CHRONIC SINUSITIS
     Dosage: 180MG   ONCE DAILY  PO
     Route: 048
     Dates: start: 20060324, end: 20060325

REACTIONS (2)
  - PRURITUS [None]
  - SKIN IRRITATION [None]
